FAERS Safety Report 5407575-4 (Version None)
Quarter: 2007Q3

REPORT INFORMATION
  Report Type: 
  Country: None (occurrence: None)
  Receive Date: 20070807
  Receipt Date: 20070730
  Transmission Date: 20080115
  Serious: Yes (Hospitalization)
  Sender: FDA-Public Use
  Company Number: US-ABBOTT-07P-163-0376272-00

PATIENT
  Sex: Male
  Weight: 66.738 kg

DRUGS (3)
  1. KALETRA [Suspect]
     Indication: HIV TEST POSITIVE
     Route: 048
     Dates: start: 20011201
  2. VIODEX [Concomitant]
     Indication: HIV TEST POSITIVE
     Route: 048
     Dates: start: 20011201
  3. EFAVIRENZ [Concomitant]
     Indication: HIV TEST POSITIVE
     Route: 048
     Dates: start: 20011201

REACTIONS (5)
  - DIARRHOEA [None]
  - FLATULENCE [None]
  - HYPOGEUSIA [None]
  - INFLAMMATION [None]
  - MYOCARDIAL INFARCTION [None]
